FAERS Safety Report 16886517 (Version 1)
Quarter: 2019Q4

REPORT INFORMATION
  Report Type: Spontaneous
  Country: CA (occurrence: CA)
  Receive Date: 20191004
  Receipt Date: 20191004
  Transmission Date: 20200122
  Serious: Yes (Other)
  Sender: FDA-Public Use
  Company Number: CA-TEVA-2019-CA-1116021

PATIENT
  Age: 54 Year
  Sex: Female

DRUGS (5)
  1. XELODA [Concomitant]
     Active Substance: CAPECITABINE
  2. ANASTROZOLE. [Suspect]
     Active Substance: ANASTROZOLE
     Indication: BLOOD OESTROGEN INCREASED
     Route: 048
  3. TYKERB [Concomitant]
     Active Substance: LAPATINIB DITOSYLATE
  4. TRASTUZUMAB. [Concomitant]
     Active Substance: TRASTUZUMAB
  5. ANASTROZOLE. [Suspect]
     Active Substance: ANASTROZOLE
     Indication: NEOPLASM MALIGNANT
     Route: 048

REACTIONS (2)
  - Malignant neoplasm progression [Unknown]
  - Metastases to liver [Unknown]
